FAERS Safety Report 7720419-0 (Version None)
Quarter: 2011Q3

REPORT INFORMATION
  Report Type: 
  Country: None (occurrence: None)
  Receive Date: 20110825
  Receipt Date: 20110810
  Transmission Date: 20111222
  Serious: Yes (Hospitalization)
  Sender: FDA-Public Use
  Company Number: 019276

PATIENT
  Age: 76 Year
  Sex: Female
  Weight: 58 kg

DRUGS (9)
  1. AMARYL [Concomitant]
  2. MICARDIS [Concomitant]
  3. EPOGIN (EPOETIN BETA) INJECTION [Concomitant]
  4. PEGAPTINIB SODIUM;PLACEBO (CODE NOT BROKEN) UNKNOWN [Suspect]
     Indication: DIABETIC RETINAL OEDEMA
     Dates: start: 20110428
  5. PLETAL [Concomitant]
  6. ISOSORBIDE DINITRATE [Concomitant]
  7. CRESTOR (ROSUVASTATIN) TABLET [Concomitant]
  8. SITAGLIPTIN PHOSPHATE (SITAGLIPTIN PHOSPHATE) TABLET [Concomitant]
  9. FLUITRAN (TRICHLORMETHIAZIDE) TABLET [Concomitant]

REACTIONS (2)
  - DYSPHEMIA [None]
  - CEREBRAL INFARCTION [None]
